FAERS Safety Report 7451033-2 (Version None)
Quarter: 2011Q2

REPORT INFORMATION
  Report Type: 
  Country: None (occurrence: None)
  Receive Date: 20110422
  Receipt Date: 20110412
  Transmission Date: 20111010
  Serious: Yes (Hospitalization)
  Sender: FDA-Public Use
  Company Number: TRP_07632_2011

PATIENT
  Sex: Male
  Weight: 221 kg

DRUGS (13)
  1. ZOLPIDEM TARTRATE [Concomitant]
  2. BENADRYL [Concomitant]
  3. IBUPROFEN [Concomitant]
  4. MULTIVITAMIN FOR MEN [Concomitant]
  5. RIBAVIRIN [Suspect]
     Indication: HEPATITIS C
     Dosage: 600 MG BID, ORAL
     Route: 048
     Dates: start: 20100717
  6. FLORAJEN 3 [Concomitant]
  7. HYDROCORTISONE [Concomitant]
  8. ACETAMINOPHEN [Concomitant]
  9. ABT-33 [Suspect]
     Indication: HEPATITIS C
     Dosage: 400 MG BID, ORAL
     Route: 048
     Dates: start: 20100714, end: 20101005
  10. PEGINTERFERON ALFA-2A [Suspect]
     Indication: HEPATITIS C
     Dosage: 180 UG 1X/WEEK, SUBCUTANEOUS
     Route: 057
     Dates: start: 20100717
  11. MOXIFLOXACIN HYDROCHLORIDE [Concomitant]
  12. SALINEX NASAL [Concomitant]
  13. RANITIDINE HYDROCHLORIDE [Concomitant]

REACTIONS (1)
  - ATRIAL FIBRILLATION [None]
